FAERS Safety Report 24904524 (Version 1)
Quarter: 2025Q1

REPORT INFORMATION
  Report Type: Report from Study
  Country: IN (occurrence: IN)
  Receive Date: 20250130
  Receipt Date: 20250130
  Transmission Date: 20250409
  Serious: Yes (Hospitalization)
  Sender: ROCHE
  Company Number: IN-ROCHE-10000185900

PATIENT
  Age: 6 Year
  Sex: Male

DRUGS (1)
  1. ACTEMRA [Suspect]
     Active Substance: TOCILIZUMAB
     Indication: Still^s disease
     Route: 040
     Dates: start: 20220210

REACTIONS (1)
  - Vital functions abnormal [Recovered/Resolved with Sequelae]

NARRATIVE: CASE EVENT DATE: 20250114
